FAERS Safety Report 9605231 (Version 2)
Quarter: 2014Q1

REPORT INFORMATION
  Report Type: Spontaneous
  Country: DE (occurrence: DE)
  Receive Date: 20131008
  Receipt Date: 20140124
  Transmission Date: 20141002
  Serious: Yes (Hospitalization)
  Sender: FDA-Public Use
  Company Number: GXKR2013DE003190

PATIENT
  Age: 73 Year
  Sex: Female
  Weight: 63 kg

DRUGS (3)
  1. RAMIPRIL HEXAL [Suspect]
     Indication: HYPERTENSION
     Route: 048
     Dates: start: 20130906, end: 20130908
  2. VALSARTAN ACTAVIS [Suspect]
     Indication: HYPERTENSION
     Route: 048
     Dates: start: 20130823, end: 20130904
  3. OLMESARTAN [Suspect]
     Indication: HYPERTENSION
     Dosage: DATE OF START OF DRUG: FOR YEARS
     Route: 048
     Dates: end: 20130816

REACTIONS (1)
  - Diarrhoea [Recovering/Resolving]
